FAERS Safety Report 4283431-2 (Version None)
Quarter: 2004Q1

REPORT INFORMATION
  Report Type: 
  Country: None (occurrence: None)
  Receive Date: 20040115
  Receipt Date: 20030904
  Transmission Date: 20041129
  Serious: Yes (Other)
  Sender: FDA-Public Use
  Company Number: US-JNJFOC-20030803086

PATIENT
  Age: 63 Year
  Sex: Female

DRUGS (1)
  1. DOXIL [Suspect]
     Indication: CARCINOID TUMOUR
     Dosage: INTRAVENOUS
     Route: 042

REACTIONS (4)
  - COUGH [None]
  - DYSPNOEA [None]
  - FLUSHING [None]
  - SPUTUM DISCOLOURED [None]
